FAERS Safety Report 18611246 (Version 1)
Quarter: 2020Q4

REPORT INFORMATION
  Report Type: Spontaneous
  Country: US (occurrence: US)
  Receive Date: 20201214
  Receipt Date: 20201214
  Transmission Date: 20210114
  Serious: Yes (Hospitalization)
  Sender: FDA-Public Use
  Company Number: None

PATIENT
  Age: 47 Year
  Sex: Female

DRUGS (1)
  1. OPMS KRATOM GOLD [Suspect]
     Active Substance: HERBALS\MITRAGYNINE
     Indication: PROCEDURAL PAIN
     Dosage: QUANTITY:8 CAPSULE(S);?
     Route: 048
     Dates: start: 20200810, end: 20201116

REACTIONS (9)
  - Adulterated product [None]
  - Drug withdrawal syndrome [None]
  - Loss of consciousness [None]
  - Myocardial infarction [None]
  - Delusion [None]
  - Hallucination [None]
  - Dependence [None]
  - Tremor [None]
  - Dyspnoea [None]

NARRATIVE: CASE EVENT DATE: 20201116
